FAERS Safety Report 21295266 (Version 2)
Quarter: 2022Q4

REPORT INFORMATION
  Report Type: Report from Study
  Country: US (occurrence: US)
  Receive Date: 20220905
  Receipt Date: 20221011
  Transmission Date: 20230112
  Serious: Yes (Other)
  Sender: FDA-Public Use
  Company Number: US-ABBVIE-22K-163-4406718-00

PATIENT
  Sex: Female

DRUGS (2)
  1. HUMIRA [Suspect]
     Active Substance: ADALIMUMAB
     Indication: Ankylosing spondylitis
     Dosage: CITRATE FREE
     Route: 058
     Dates: start: 20211005, end: 20220805
  2. HUMIRA [Suspect]
     Active Substance: ADALIMUMAB
     Route: 058
     Dates: start: 20220919

REACTIONS (7)
  - Tendon disorder [Unknown]
  - Loss of personal independence in daily activities [Unknown]
  - Ankylosing spondylitis [Unknown]
  - Pain [Unknown]
  - Injection site bruising [Unknown]
  - Injection site pain [Unknown]
  - Therapeutic response shortened [Unknown]
